FAERS Safety Report 11871343 (Version 3)
Quarter: 2016Q1

REPORT INFORMATION
  Report Type: Spontaneous
  Country: JP (occurrence: JP)
  Receive Date: 20151228
  Receipt Date: 20160115
  Transmission Date: 20160526
  Serious: No
  Sender: FDA-Public Use
  Company Number: JP-ASTRAZENECA-2015SF20104

PATIENT
  Age: 10799 Day
  Sex: Female
  Weight: 62 kg

DRUGS (5)
  1. LEXAPRO [Concomitant]
     Active Substance: ESCITALOPRAM OXALATE
     Dates: start: 20140919, end: 20150313
  2. SELBEX [Concomitant]
     Active Substance: TEPRENONE
     Dates: start: 20150824, end: 20150907
  3. UTEMERIN [Concomitant]
     Active Substance: RITODRINE
     Indication: MATERNAL EXPOSURE DURING PREGNANCY
     Route: 048
     Dates: start: 20150722, end: 20150902
  4. SEROQUEL [Suspect]
     Active Substance: QUETIAPINE FUMARATE
     Indication: DEPRESSION
     Dosage: ONCE DAILY, 25-50 MG
     Route: 048
     Dates: start: 20110711
  5. YOKUKANSAN [Concomitant]
     Active Substance: HERBALS
     Dates: start: 20150731, end: 20150828

REACTIONS (3)
  - Maternal exposure during pregnancy [Unknown]
  - Threatened labour [Recovered/Resolved]
  - Off label use [Not Recovered/Not Resolved]

NARRATIVE: CASE EVENT DATE: 20110711
